FAERS Safety Report 6174446-8 (Version None)
Quarter: 2009Q2

REPORT INFORMATION
  Report Type: 
  Country: None (occurrence: None)
  Receive Date: 20090430
  Receipt Date: 20080609
  Transmission Date: 20091009
  Serious: Yes (Other)
  Sender: FDA-Public Use
  Company Number: US-ASTRAZENECA-2008UW11570

PATIENT
  Age: 53 Year
  Sex: Female
  Weight: 49.9 kg

DRUGS (3)
  1. NEXIUM [Suspect]
     Indication: ULCER
     Dosage: TWO TO THREE TIMES A WEEK
     Route: 048
     Dates: start: 20070101
  2. RESTORIL [Concomitant]
  3. FIORICET [Concomitant]

REACTIONS (1)
  - NEUTROPENIA [None]
